FAERS Safety Report 17746551 (Version 2)
Quarter: 2020Q2

REPORT INFORMATION
  Report Type: Spontaneous
  Country: GB (occurrence: GB)
  Receive Date: 20200505
  Receipt Date: 20200508
  Transmission Date: 20200714
  Serious: Yes (Hospitalization, Other)
  Sender: FDA-Public Use
  Company Number: GB-PFIZER INC-2020175078

PATIENT
  Age: 52 Year
  Sex: Female
  Weight: 71 kg

DRUGS (5)
  1. PREDNISOLONE. [Concomitant]
     Active Substance: PREDNISOLONE
     Indication: ARTHROPATHY
     Dosage: 5 MG
  2. PREDNISOLONE. [Concomitant]
     Active Substance: PREDNISOLONE
     Indication: PNEUMONIA
     Dosage: UNK
  3. GRANULOCYTE COLONY STIMULATING FACTOR [Suspect]
     Active Substance: GRANULOCYTE COLONY-STIMULATING FACTOR NOS
     Indication: NEUTROPENIA
     Dosage: 300 UG
     Route: 065
     Dates: start: 2018
  4. PREDNISOLONE. [Concomitant]
     Active Substance: PREDNISOLONE
     Indication: C-REACTIVE PROTEIN INCREASED
     Dosage: UNK
  5. PREDNISOLONE. [Concomitant]
     Active Substance: PREDNISOLONE
     Indication: INFECTION
     Dosage: UNK

REACTIONS (10)
  - Off label use [Unknown]
  - Hypoalbuminaemia [Recovering/Resolving]
  - Infection [Recovered/Resolved]
  - Product use in unapproved indication [Unknown]
  - Capillary leak syndrome [Unknown]
  - Oedema [Not Recovered/Not Resolved]
  - Swelling [Recovering/Resolving]
  - Neutropenia [Recovering/Resolving]
  - Pneumonia [Recovered/Resolved]
  - Thymoma [Unknown]

NARRATIVE: CASE EVENT DATE: 2018
